FAERS Safety Report 16076765 (Version 1)
Quarter: 2019Q1

REPORT INFORMATION
  Report Type: Spontaneous
  Country: FR (occurrence: FR)
  Receive Date: 20190315
  Receipt Date: 20190315
  Transmission Date: 20190418
  Serious: Yes (Hospitalization)
  Sender: FDA-Public Use
  Company Number: FR-ROCHE-2275770

PATIENT
  Age: 84 Year
  Sex: Male

DRUGS (7)
  1. APRANAX [Suspect]
     Active Substance: NAPROXEN
     Indication: PAIN
     Route: 048
     Dates: start: 200904
  2. LYRICA [Suspect]
     Active Substance: PREGABALIN
     Indication: PAIN
     Route: 048
     Dates: start: 200904
  3. ZAMUDOL [Suspect]
     Active Substance: TRAMADOL HYDROCHLORIDE
     Indication: PAIN
     Route: 048
     Dates: start: 200904
  4. RIVOTRIL [Suspect]
     Active Substance: CLONAZEPAM
     Indication: PAIN
     Route: 048
     Dates: start: 200904
  5. LAROXYL [Suspect]
     Active Substance: AMITRIPTYLINE HYDROCHLORIDE
     Indication: PAIN
     Route: 048
     Dates: start: 200904
  6. TRAMADOL. [Suspect]
     Active Substance: TRAMADOL
     Indication: PAIN
     Route: 048
     Dates: start: 200904
  7. LOVENOX [Concomitant]
     Active Substance: ENOXAPARIN SODIUM
     Route: 065

REACTIONS (7)
  - Vomiting [Unknown]
  - Cyanosis [Unknown]
  - Somnolence [Unknown]
  - Overdose [Unknown]
  - Blood pressure increased [Unknown]
  - Tachypnoea [Unknown]
  - Respiratory distress [Unknown]

NARRATIVE: CASE EVENT DATE: 200904
